FAERS Safety Report 12111564 (Version 1)
Quarter: 2016Q1

REPORT INFORMATION
  Report Type: Spontaneous
  Country: US (occurrence: US)
  Receive Date: 20160224
  Receipt Date: 20160224
  Transmission Date: 20160526
  Serious: No
  Sender: FDA-Public Use
  Company Number: US-LUNDBECK-DKLU2009838

PATIENT
  Sex: Female

DRUGS (1)
  1. NORTHERA [Suspect]
     Active Substance: DROXIDOPA
     Indication: ORTHOSTATIC HYPOTENSION
     Route: 065

REACTIONS (5)
  - Headache [Unknown]
  - Dysarthria [Not Recovered/Not Resolved]
  - Asthenia [Unknown]
  - Orthostatic hypotension [Not Recovered/Not Resolved]
  - Hypertension [Not Recovered/Not Resolved]
